FAERS Safety Report 12969555 (Version 9)
Quarter: 2018Q2

REPORT INFORMATION
  Report Type: Report from Study
  Country: JP (occurrence: JP)
  Receive Date: 20161123
  Receipt Date: 20180530
  Transmission Date: 20180711
  Serious: Yes (Hospitalization, Other)
  Sender: FDA-Public Use
  Company Number: JP-ACTELION-A-CH2016-145621

PATIENT
  Age: 50 Year
  Sex: Female

DRUGS (47)
  1. EPOPROSTENOL ACT [Suspect]
     Active Substance: EPOPROSTENOL
     Dosage: 11.4 NG/KG, PER MIN
     Route: 042
     Dates: start: 20151105
  2. EPOPROSTENOL ACT [Suspect]
     Active Substance: EPOPROSTENOL
     Dosage: 25.5 NG/KG, PER MIN
     Route: 042
     Dates: start: 20151208
  3. EPOPROSTENOL ACT [Suspect]
     Active Substance: EPOPROSTENOL
     Dosage: 34.0 NG/KG, PER MIN
     Route: 042
     Dates: start: 20160205
  4. EPOPROSTENOL ACT [Suspect]
     Active Substance: EPOPROSTENOL
     Dosage: 42.5 NG/KG, PER MIN
     Route: 042
     Dates: start: 20160405
  5. EPOPROSTENOL ACT [Suspect]
     Active Substance: EPOPROSTENOL
     Dosage: 55.5 NG/KG, PER MIN
     Route: 042
     Dates: start: 20160705
  6. EPOPROSTENOL ACT [Suspect]
     Active Substance: EPOPROSTENOL
     Dosage: 68.5 NG/KG, PER MIN
     Route: 042
     Dates: start: 20161005
  7. CEFAZOLINA [Suspect]
     Active Substance: CEFAZOLIN SODIUM
     Dosage: 3 G, QD
     Route: 042
     Dates: start: 20151003, end: 20151007
  8. EPOPROSTENOL ACT [Suspect]
     Active Substance: EPOPROSTENOL
     Indication: PULMONARY ARTERIAL HYPERTENSION
     Dosage: 0.214 NG/KG, PER MIN
     Route: 042
     Dates: start: 20151005
  9. EPOPROSTENOL ACT [Suspect]
     Active Substance: EPOPROSTENOL
     Dosage: 29.5 NG/KG, PER MIN
     Route: 042
     Dates: start: 20160105
  10. EPOPROSTENOL ACT [Suspect]
     Active Substance: EPOPROSTENOL
     Dosage: 38.0 NG/KG, PER MIN
     Route: 042
     Dates: start: 20160305
  11. EPOPROSTENOL ACT [Suspect]
     Active Substance: EPOPROSTENOL
     Dosage: 2.354 NG/KG, PER MIN
     Route: 042
     Dates: start: 20151015
  12. CEFAZOLINA [Suspect]
     Active Substance: CEFAZOLIN SODIUM
     Indication: INFECTION PROPHYLAXIS
     Dosage: 1 G, QD
     Route: 042
     Dates: start: 20151002, end: 20151002
  13. CEFAZOLINA [Suspect]
     Active Substance: CEFAZOLIN SODIUM
     Dosage: 1 G, QD
     Route: 042
     Dates: start: 20151016, end: 20151016
  14. PROPOFOL. [Concomitant]
     Active Substance: PROPOFOL
     Indication: PRODUCT USED FOR UNKNOWN INDICATION
  15. OXYGEN. [Concomitant]
     Active Substance: OXYGEN
     Indication: PRODUCT USED FOR UNKNOWN INDICATION
  16. EPOPROSTENOL ACT [Suspect]
     Active Substance: EPOPROSTENOL
     Dosage: 51.0 NG/KG, PER MIN
     Route: 042
     Dates: start: 20160605
  17. EPOPROSTENOL ACT [Suspect]
     Active Substance: EPOPROSTENOL
     Dosage: 1.498 NG/KG, PER MIN
     Route: 042
     Dates: start: 20151011
  18. EPOPROSTENOL ACT [Suspect]
     Active Substance: EPOPROSTENOL
     Dosage: 59.5 NG/KG, PER MIN
     Route: 042
     Dates: start: 20160803
  19. EPOPROSTENOL ACT [Suspect]
     Active Substance: EPOPROSTENOL
     Dosage: 73 NG/KG, PER MIN
     Route: 042
     Dates: start: 20161105
  20. LAC-B [Concomitant]
     Active Substance: BIFIDOBACTERIUM SPP.
     Dosage: 3 G, QD
     Dates: start: 20170223
  21. EPOPROSTENOL ACT [Suspect]
     Active Substance: EPOPROSTENOL
     Dosage: 69.5 NG/KG, PER MIN
     Route: 042
  22. ADEMPAS [Interacting]
     Active Substance: RIOCIGUAT
     Indication: PULMONARY ARTERIAL HYPERTENSION
     Dosage: 10 MG, TID
     Route: 048
     Dates: start: 20151001, end: 20151002
  23. LASIX [Concomitant]
     Active Substance: FUROSEMIDE
     Indication: PRODUCT USED FOR UNKNOWN INDICATION
  24. WARFARIN POTASSIUM [Concomitant]
     Active Substance: WARFARIN POTASSIUM
     Indication: PRODUCT USED FOR UNKNOWN INDICATION
  25. EPOPROSTENOL ACT [Suspect]
     Active Substance: EPOPROSTENOL
     Dosage: 0.427 NG/KG, PER MIN
     Route: 042
     Dates: start: 20151006
  26. OMEPRAZOLE SODIUM [Concomitant]
     Active Substance: OMEPRAZOLE SODIUM
     Indication: PRODUCT USED FOR UNKNOWN INDICATION
  27. HEPARIN SODIUM. [Concomitant]
     Active Substance: HEPARIN SODIUM
     Indication: FIBRIN DEGRADATION PRODUCTS INCREASED
  28. ATARAX-P [Concomitant]
     Active Substance: HYDROXYZINE HYDROCHLORIDE
     Indication: PRODUCT USED FOR UNKNOWN INDICATION
  29. OPSUMIT [Suspect]
     Active Substance: MACITENTAN
     Indication: PULMONARY ARTERIAL HYPERTENSION
     Dosage: 10 MG, QD
     Route: 048
     Dates: start: 20150929
  30. EPOPROSTENOL ACT [Suspect]
     Active Substance: EPOPROSTENOL
     Dosage: 64 NG/KG, PER MIN
     Route: 042
     Dates: start: 20160905
  31. EPOPROSTENOL ACT [Suspect]
     Active Substance: EPOPROSTENOL
     Dosage: 0.427 NG/KG, PER MIN
     Route: 042
     Dates: start: 20151007
  32. INOVAN [Concomitant]
     Active Substance: DOPAMINE HYDROCHLORIDE
     Indication: PRODUCT USED FOR UNKNOWN INDICATION
  33. EPOPROSTENOL ACT [Suspect]
     Active Substance: EPOPROSTENOL
     Dosage: 37.5 NG/KG, PER MIN
     Route: 042
     Dates: start: 20160301
  34. CEFAZOLINA [Suspect]
     Active Substance: CEFAZOLIN SODIUM
     Dosage: 2 G, QD
     Route: 042
     Dates: start: 20151021, end: 20151023
  35. CALONAL [Concomitant]
     Active Substance: ACETAMINOPHEN
     Indication: TEMPOROMANDIBULAR JOINT SYNDROME
     Dosage: UNK, PRN
     Dates: start: 20151105, end: 20160818
  36. FENTANYL CITRATE. [Concomitant]
     Active Substance: FENTANYL CITRATE
     Indication: PRODUCT USED FOR UNKNOWN INDICATION
  37. MAGLAX [Concomitant]
     Active Substance: MAGNESIUM OXIDE
     Indication: PRODUCT USED FOR UNKNOWN INDICATION
  38. EPOPROSTENOL ACT [Suspect]
     Active Substance: EPOPROSTENOL
     Dosage: 27 NG/KG, PER MIN
     Route: 042
  39. EPOPROSTENOL ACT [Suspect]
     Active Substance: EPOPROSTENOL
     Dosage: 46.5 NG/KG, PER MIN
     Route: 042
     Dates: start: 20160505
  40. EPOPROSTENOL ACT [Suspect]
     Active Substance: EPOPROSTENOL
     Dosage: 60 NG/KG, PER MIN
     Route: 042
     Dates: start: 20160805
  41. EPOPROSTENOL ACT [Suspect]
     Active Substance: EPOPROSTENOL
     Dosage: 1.259 NG/KG, PER MIN
     Route: 042
     Dates: start: 20151010
  42. EPOPROSTENOL ACT [Suspect]
     Active Substance: EPOPROSTENOL
     Dosage: 74 NG/KG, PER MIN
     Route: 042
     Dates: start: 20161205
  43. SENNOSIDE [Suspect]
     Active Substance: SENNOSIDES
     Indication: CONSTIPATION
     Dosage: UNK, PRN
     Route: 048
     Dates: start: 20151007, end: 20151009
  44. CEFAZOLINA [Suspect]
     Active Substance: CEFAZOLIN SODIUM
     Dosage: 1 G, QD
     Route: 042
     Dates: start: 20151008, end: 20151008
  45. CALONAL [Concomitant]
     Active Substance: ACETAMINOPHEN
     Indication: ARTHRALGIA
  46. NEXIUM [Concomitant]
     Active Substance: ESOMEPRAZOLE MAGNESIUM
     Indication: PRODUCT USED FOR UNKNOWN INDICATION
  47. DOBUPUM [Concomitant]
     Active Substance: DOBUTAMINE HYDROCHLORIDE

REACTIONS (38)
  - PCO2 decreased [Recovering/Resolving]
  - Extracorporeal membrane oxygenation [Unknown]
  - Catheter site infection [Recovered/Resolved]
  - Headache [Recovering/Resolving]
  - Back pain [Recovered/Resolved]
  - Insomnia [Recovered/Resolved]
  - Dermatitis contact [Recovered/Resolved]
  - White blood cell count decreased [Recovered/Resolved]
  - Circulatory collapse [Recovering/Resolving]
  - Catheter site erythema [Recovered/Resolved]
  - Cough [Recovered/Resolved with Sequelae]
  - Nausea [Recovered/Resolved]
  - Vomiting [Recovered/Resolved]
  - Catheter site dermatitis [Recovered/Resolved]
  - Chest pain [Recovering/Resolving]
  - Pseudomonas infection [Recovered/Resolved]
  - Vasculitis [Recovering/Resolving]
  - Blood pressure decreased [Recovering/Resolving]
  - Constipation [Recovered/Resolved]
  - Erythema [Recovering/Resolving]
  - Diarrhoea [Recovering/Resolving]
  - Transfusion [Unknown]
  - Hypokalaemia [Recovered/Resolved]
  - Faeces soft [Recovering/Resolving]
  - Decreased appetite [Recovered/Resolved]
  - Blood potassium decreased [Recovered/Resolved]
  - Temporomandibular joint syndrome [Recovered/Resolved]
  - Pain in extremity [Recovering/Resolving]
  - Miliaria [Recovered/Resolved]
  - Intra-aortic balloon placement [Unknown]
  - Pseudomembranous colitis [Recovered/Resolved]
  - Arthralgia [Recovered/Resolved]
  - Dizziness postural [Recovering/Resolving]
  - PO2 decreased [Recovering/Resolving]
  - Pruritus [Recovering/Resolving]
  - Abdominal pain [Recovered/Resolved with Sequelae]
  - Fibrin degradation products [Recovered/Resolved]
  - Drug interaction [Unknown]

NARRATIVE: CASE EVENT DATE: 201510
